FAERS Safety Report 10025512 (Version 1)
Quarter: 2014Q1

REPORT INFORMATION
  Report Type: Spontaneous
  Country: US (occurrence: None)
  Receive Date: 20140319
  Receipt Date: 20140319
  Transmission Date: 20141002
  Serious: No
  Sender: FDA-Public Use
  Company Number: None

PATIENT
  Age: 70 Year
  Sex: Male
  Weight: 97.6 kg

DRUGS (1)
  1. TIOTROPIUM [Suspect]
     Route: 055
     Dates: start: 20140204, end: 20140213

REACTIONS (2)
  - Myalgia [None]
  - Burning sensation [None]
